FAERS Safety Report 12467008 (Version 1)
Quarter: 2016Q2

REPORT INFORMATION
  Report Type: Spontaneous
  Country: US (occurrence: None)
  Receive Date: 20160614
  Receipt Date: 20160614
  Transmission Date: 20160815
  Serious: Yes (Other)
  Sender: FDA-Public Use
  Company Number: None

PATIENT
  Age: 31 Year
  Sex: Female
  Weight: 90.72 kg

DRUGS (11)
  1. BIOTIN [Concomitant]
     Active Substance: BIOTIN
  2. IMITREX [Concomitant]
     Active Substance: SUMATRIPTAN SUCCINATE
  3. ZOFRAN [Concomitant]
     Active Substance: ONDANSETRON HYDROCHLORIDE
  4. VITAMIN C [Concomitant]
     Active Substance: ASCORBIC ACID
  5. ZECUITY [Suspect]
     Active Substance: SUMATRIPTAN SUCCINATE
     Indication: MIGRAINE
     Dosage: 1 PATCH(ES) AS NEEDED APPLIED AS MEDICATED PATCH TO SKIN
     Route: 061
     Dates: start: 20160129, end: 20160317
  6. CLARITIN [Concomitant]
     Active Substance: LORATADINE
  7. AMBIEN [Concomitant]
     Active Substance: ZOLPIDEM TARTRATE
  8. SKELAXIN [Concomitant]
     Active Substance: METAXALONE
  9. MULTI-VITAMIN [Concomitant]
     Active Substance: .ALPHA.-TOCOPHEROL ACETATE, DL-\ASCORBIC ACID\CYANOCOBALAMIN\FLUORIDE ION\FOLIC ACID\NIACIN\PYRIDOXINE\RIBOFLAVIN\THIAMINE\VITAMIN A\VITAMIN D
  10. PEPCID [Concomitant]
     Active Substance: FAMOTIDINE
  11. ZINC [Concomitant]
     Active Substance: ZINC\ZINC CHLORIDE

REACTIONS (3)
  - Medical device site pain [None]
  - Application site erythema [None]
  - Application site burn [None]

NARRATIVE: CASE EVENT DATE: 20160316
